FAERS Safety Report 5290035-1 (Version None)
Quarter: 2007Q1

REPORT INFORMATION
  Report Type: 
  Country: None (occurrence: None)
  Receive Date: 20070330
  Receipt Date: 20070323
  Transmission Date: 20070707
  Serious: Yes (Hospitalization)
  Sender: FDA-Public Use
  Company Number: 2007AL001204

PATIENT
  Age: 89 Year
  Sex: Male

DRUGS (7)
  1. DICLOFENAC SODIUM [Suspect]
     Indication: BACK PAIN
     Dosage: 1 TAB; QD; PO
     Route: 048
     Dates: start: 20061122, end: 20061123
  2. CO-CODAMOL [Concomitant]
  3. SIMVASTATIN [Concomitant]
  4. ASPIRIN [Concomitant]
  5. LEVOTHYROXINE SODIUM [Concomitant]
  6. GLYCERYL TRINITRATE [Concomitant]
  7. ADIZEM [Concomitant]

REACTIONS (2)
  - DERMATOMYOSITIS [None]
  - OEDEMA PERIPHERAL [None]
